FAERS Safety Report 9302847 (Version 2)
Quarter: 2013Q2

REPORT INFORMATION
  Report Type: Spontaneous
  Country: CH (occurrence: CH)
  Receive Date: 20130522
  Receipt Date: 20130529
  Transmission Date: 20140414
  Serious: Yes (Hospitalization)
  Sender: FDA-Public Use
  Company Number: CH-009507513-1305CHE010469

PATIENT
  Sex: Male
  Weight: 140 kg

DRUGS (2)
  1. SYCREST [Suspect]
     Indication: BIPOLAR DISORDER
     Dosage: 40 MG DAILY (20 MG, 2 IN 1 D)
     Route: 048
     Dates: start: 201301
  2. SYCREST [Suspect]
     Dosage: 20 MG MILLIGRAM(S) (10 MG MILLIGRAM(S) , 2 IN 1 D)
     Route: 048

REACTIONS (4)
  - Energy increased [Not Recovered/Not Resolved]
  - Prescribed overdose [Not Recovered/Not Resolved]
  - Insomnia [Not Recovered/Not Resolved]
  - Increased appetite [Not Recovered/Not Resolved]
